FAERS Safety Report 20661941 (Version 1)
Quarter: 2022Q2

REPORT INFORMATION
  Report Type: Spontaneous
  Country: IN (occurrence: IN)
  Receive Date: 20220401
  Receipt Date: 20220401
  Transmission Date: 20220721
  Serious: Yes (Hospitalization, Other)
  Sender: FDA-Public Use
  Company Number: IN-SUN PHARMACEUTICAL INDUSTRIES LTD-2022R1-331401

PATIENT
  Age: 27 Year
  Sex: Female

DRUGS (9)
  1. AGOMELATINE [Suspect]
     Active Substance: AGOMELATINE
     Indication: Disturbance in attention
     Route: 048
  2. AGOMELATINE [Suspect]
     Active Substance: AGOMELATINE
     Indication: Memory impairment
  3. MEMANTINE [Suspect]
     Active Substance: MEMANTINE
     Indication: Disturbance in attention
     Dosage: UNK, QD
     Route: 048
  4. MEMANTINE [Suspect]
     Active Substance: MEMANTINE
     Indication: Memory impairment
  5. PROGESTERONE [Suspect]
     Active Substance: PROGESTERONE
     Indication: Supplementation therapy
     Dosage: UNK
     Route: 065
  6. THIAMINE [Suspect]
     Active Substance: THIAMINE
     Indication: Product used for unknown indication
     Dosage: 500 MILLIGRAM, BID
     Route: 042
  7. THIAMINE [Suspect]
     Active Substance: THIAMINE
     Indication: Disturbance in attention
     Dosage: 200 MILLIGRAM, DAILY
     Route: 048
  8. THIAMINE [Suspect]
     Active Substance: THIAMINE
     Indication: Memory impairment
     Dosage: 100 MILLIGRAM, BID
     Route: 048
  9. PIRACETAM [Concomitant]
     Active Substance: PIRACETAM
     Indication: Product used for unknown indication
     Dosage: UNK, TID
     Route: 048

REACTIONS (3)
  - Premature labour [Unknown]
  - Premature delivery [Unknown]
  - Exposure during pregnancy [Unknown]
